FAERS Safety Report 13429961 (Version 1)
Quarter: 2017Q2

REPORT INFORMATION
  Report Type: Spontaneous
  Country: US (occurrence: US)
  Receive Date: 20170411
  Receipt Date: 20170411
  Transmission Date: 20170830
  Serious: No
  Sender: FDA-Public Use
  Company Number: None

PATIENT
  Age: 58 Year
  Sex: Female
  Weight: 58.5 kg

DRUGS (1)
  1. PROGESTERONE. [Suspect]
     Active Substance: PROGESTERONE
     Indication: HORMONE THERAPY
     Route: 048
     Dates: start: 20170122, end: 20170411

REACTIONS (4)
  - Drug effect decreased [None]
  - Product substitution issue [None]
  - Muscle spasms [None]
  - Weight increased [None]

NARRATIVE: CASE EVENT DATE: 20170411
